FAERS Safety Report 8766276 (Version 1)
Quarter: 2012Q4

REPORT INFORMATION
  Report Type: 
  Country: US (occurrence: US)
  Receive Date: 20120904
  Receipt Date: 20120904
  Transmission Date: 20130627
  Serious: No
  Sender: FDA-Public Use
  Company Number: US-AMGEN-USASP2012053536

PATIENT
  Sex: Female

DRUGS (1)
  1. ENBREL [Suspect]
     Indication: PSORIASIS
     Dosage: UNK UNK, qwk
     Route: 058
     Dates: start: 20110301

REACTIONS (11)
  - Gingival swelling [Recovered/Resolved]
  - Auricular swelling [Recovered/Resolved]
  - Localised oedema [Recovered/Resolved]
  - Arthralgia [Recovered/Resolved]
  - Musculoskeletal pain [Recovered/Resolved]
  - Pain in extremity [Recovered/Resolved]
  - Back pain [Recovered/Resolved]
  - Arthritis [Unknown]
  - Lymphadenopathy [Recovered/Resolved]
  - Psoriasis [Recovered/Resolved]
  - Sinusitis [Unknown]
